FAERS Safety Report 10038913 (Version 1)
Quarter: 2014Q1

REPORT INFORMATION
  Report Type: Spontaneous
  Country: US (occurrence: None)
  Receive Date: 20140306
  Receipt Date: 20140306
  Transmission Date: 20141002
  Serious: Yes (Hospitalization)
  Sender: FDA-Public Use
  Company Number: 163-21880-12072205

PATIENT
  Age: 56 Year
  Sex: Male
  Weight: 115.67 kg

DRUGS (38)
  1. REVLIMID (LENALIDOMIDE) (CAPSULES) [Suspect]
     Indication: PLASMA CELL MYELOMA
     Dosage: 25 MG, 21 IN 21 D, PO
     Route: 048
     Dates: start: 20120220
  2. IPH2101 [Suspect]
     Indication: PLASMA CELL MYELOMA
     Dosage: 1 MG/KG, EACH CYCLE, IV
     Route: 042
     Dates: end: 20120703
  3. ACYCLOVIR [Concomitant]
  4. TRANSFUSION (BLOOD AND RELATED PRODUCTS) [Concomitant]
  5. HUMALOG (INSULIN LISPRO) [Concomitant]
  6. LORTAB (VICODIN) (TABLETS) [Concomitant]
  7. FLOMAX (TAMSULOSIN HYDROCHLORIDE) [Concomitant]
  8. ZOCOR (SIMVASTATIN) [Concomitant]
  9. NEXIUM (ESOMEPRAZOLE) [Concomitant]
  10. MULTIVITAMINS (MULTIVITAMINS) (TABLETS) [Concomitant]
  11. OMEGA 3 (FISH OIL) [Concomitant]
  12. CELEXA (CITALOPRAM HYDROBROMIDE) [Concomitant]
  13. VITAMIN B12 (CYANOCOBALAMIN) [Concomitant]
  14. RANITIDINE (RANITIDINE) [Concomitant]
  15. VALTREX (VALACICLOVIR HYDROCHLORIDE) [Concomitant]
  16. CO-Q10 (UBIDECARENONE) [Concomitant]
  17. PROBIOTICS (PROBIOTICS) (CAPSULES) [Concomitant]
  18. ASPIRIN (ACETYLSALICYLIC ACID) [Concomitant]
  19. ZANTAC (RANITIDINE HYDROCHLORIDE) [Concomitant]
  20. LISINOPRIL (LISINOPRIL) [Concomitant]
  21. METOPROLOL-XR (METOPROLOL) [Concomitant]
  22. KLONOPIN (CLONAZEPAM) [Concomitant]
  23. ALLOPURINOL (ALLOPURINOL) [Concomitant]
  24. CHLOR-TRIMETON (CHLORPHENAMINE MALEATE) [Concomitant]
  25. GLUCOSULIN (ALL OTHER THERAPEUTIC PRODUCTS) (CAPSULES) [Concomitant]
  26. GLYCOZENE (HERBAL PREPARATION) (CAPSULES) [Concomitant]
  27. LOMOTIL (LOMOTIL) [Concomitant]
  28. PHENERGAN (PROMETHAZINE HYDROCHLORIDE) [Concomitant]
  29. EPOGEN (EPOETIN ALFA) (INJECTION) [Concomitant]
  30. ROXICODONE (OXYCODONE HYDROCHLORIDE) [Concomitant]
  31. PROTONIX [Concomitant]
  32. FLONASE (FLUTICASONE PROPIONATE) (INHALANT) [Concomitant]
  33. SINGULAIR (MONTELUKAST SODIUM) [Concomitant]
  34. ALBUTEROL (SALBUTAMOL) (INHALANT) [Concomitant]
  35. NORVASC (AMLODIPINE BESILATE) [Concomitant]
  36. DECADRON (DEXAMETHASONE) (INJECTION) [Concomitant]
  37. SKELAXIN (METAXALONE) [Concomitant]
  38. NITROSTAT (GLYCERYL TRINITRATE) [Concomitant]

REACTIONS (1)
  - Back pain [None]
